FAERS Safety Report 5461625-8 (Version None)
Quarter: 2007Q3

REPORT INFORMATION
  Report Type: 
  Country: None (occurrence: None)
  Receive Date: 20070920
  Receipt Date: 20061116
  Transmission Date: 20080115
  Serious: No
  Sender: FDA-Public Use
  Company Number: A0627600A

PATIENT
  Age: 36 Year
  Sex: Female

DRUGS (1)
  1. ABREVA [Suspect]
     Dates: start: 20061112, end: 20061114

REACTIONS (1)
  - ORAL HERPES [None]
